FAERS Safety Report 13047181 (Version 4)
Quarter: 2017Q3

REPORT INFORMATION
  Report Type: Spontaneous
  Country: US (occurrence: US)
  Receive Date: 20161220
  Receipt Date: 20170718
  Transmission Date: 20171127
  Serious: No
  Sender: FDA-Public Use
  Company Number: US-INCYTE CORPORATION-2016IN007991

PATIENT

DRUGS (3)
  1. ALLOPURINOL. [Concomitant]
     Active Substance: ALLOPURINOL
     Indication: PRODUCT USED FOR UNKNOWN INDICATION
     Dosage: UNK
     Route: 065
  2. MELOXICAM. [Concomitant]
     Active Substance: MELOXICAM
     Indication: PRODUCT USED FOR UNKNOWN INDICATION
  3. JAKAFI [Suspect]
     Active Substance: RUXOLITINIB
     Indication: MYELOFIBROSIS
     Dosage: 10 MG, BID
     Route: 048
     Dates: start: 20161213

REACTIONS (15)
  - Pyrexia [Unknown]
  - Dyspnoea [Unknown]
  - Diarrhoea [Unknown]
  - Fatigue [Unknown]
  - Abdominal pain [Unknown]
  - Malaise [Unknown]
  - Weight decreased [Recovering/Resolving]
  - Alopecia [Recovering/Resolving]
  - Drug dose omission [Unknown]
  - Muscular weakness [Unknown]
  - Oropharyngeal pain [Unknown]
  - Tenderness [Unknown]
  - Nausea [Unknown]
  - Splenomegaly [Unknown]
  - Vomiting [Unknown]

NARRATIVE: CASE EVENT DATE: 20161213
